FAERS Safety Report 5901271-2 (Version None)
Quarter: 2008Q3

REPORT INFORMATION
  Report Type: 
  Country: None (occurrence: None)
  Receive Date: 20080929
  Receipt Date: 20080801
  Transmission Date: 20090109
  Serious: No
  Sender: FDA-Public Use
  Company Number: US-BRISTOL-MYERS SQUIBB COMPANY-14286728

PATIENT
  Sex: Female
  Weight: 104 kg

DRUGS (4)
  1. ORENCIA [Suspect]
     Indication: RHEUMATOID ARTHRITIS
     Dates: start: 20080603
  2. FOLIC ACID [Concomitant]
  3. VITAMINS [Concomitant]
  4. METHOTREXATE [Concomitant]

REACTIONS (1)
  - PHOTOSENSITIVITY REACTION [None]
